FAERS Safety Report 8281831-7 (Version None)
Quarter: 2012Q2

REPORT INFORMATION
  Report Type: 
  Country: None (occurrence: None)
  Receive Date: 20120413
  Receipt Date: 20120405
  Transmission Date: 20120825
  Serious: Yes (Other)
  Sender: FDA-Public Use
  Company Number: PHHY2012CH017616

PATIENT
  Sex: Male
  Weight: 85 kg

DRUGS (4)
  1. LITHIUM CARBONATE [Concomitant]
  2. LORAZEPAM [Concomitant]
  3. SERTRALINE HYDROCHLORIDE [Concomitant]
  4. CLOZAPINE [Suspect]
     Indication: SCHIZOAFFECTIVE DISORDER
     Dosage: 25 MG, DALY
     Dates: start: 20090101

REACTIONS (2)
  - THROMBOPHLEBITIS [None]
  - EMBOLISM [None]
